FAERS Safety Report 12950417 (Version 3)
Quarter: 2017Q1

REPORT INFORMATION
  Report Type: Spontaneous
  Country: US (occurrence: US)
  Receive Date: 20161117
  Receipt Date: 20170110
  Transmission Date: 20170428
  Serious: Yes (Hospitalization, Other)
  Sender: FDA-Public Use
  Company Number: US-SMITH AND NEPHEW, INC-2016SMT00986

PATIENT
  Sex: Female
  Weight: 60.77 kg

DRUGS (16)
  1. NORCO [Concomitant]
     Active Substance: ACETAMINOPHEN\HYDROCODONE BITARTRATE
  2. ATENOLOL. [Concomitant]
     Active Substance: ATENOLOL
     Dosage: 25 UNK, 1X/DAY
  3. LASIX [Concomitant]
     Active Substance: FUROSEMIDE
     Dosage: 20 UNK, 2X/DAY
  4. UNSPECIFIED INSULIN [Concomitant]
     Active Substance: INSULIN NOS
     Dosage: SLIDING SCALE
  5. PRILOSEC [Concomitant]
     Active Substance: OMEPRAZOLE MAGNESIUM
  6. REGRANEX [Suspect]
     Active Substance: BECAPLERMIN
     Indication: WOUND
     Dosage: UNK, 1X/DAY (LEFT ON FOR 24 HOURS)
     Route: 061
     Dates: start: 2016, end: 201610
  7. CLONIDINE. [Concomitant]
     Active Substance: CLONIDINE
  8. FERROUS SULFATE. [Concomitant]
     Active Substance: FERROUS SULFATE
  9. PLAVIX [Concomitant]
     Active Substance: CLOPIDOGREL BISULFATE
     Dosage: 75 UNK, 1X/DAY
  10. ATIVAN [Concomitant]
     Active Substance: LORAZEPAM
  11. NORVASC [Concomitant]
     Active Substance: AMLODIPINE BESYLATE
  12. ZOCOR [Concomitant]
     Active Substance: SIMVASTATIN
  13. MIRALAX [Concomitant]
     Active Substance: POLYETHYLENE GLYCOL 3350
  14. DURAGESIC [Concomitant]
     Active Substance: FENTANYL
  15. REGRANEX [Suspect]
     Active Substance: BECAPLERMIN
     Dosage: UNK, 1X/DAY (LEFT ON FOR 24 HOURS)
     Route: 061
     Dates: start: 20161110
  16. LANTUS [Concomitant]
     Active Substance: INSULIN GLARGINE
     Dosage: 8 U, 1X/DAY

REACTIONS (5)
  - Osteomyelitis [Recovering/Resolving]
  - Peripheral vascular disorder [Unknown]
  - Anaemia [Unknown]
  - Incorrect drug administration duration [Not Recovered/Not Resolved]
  - Pain [Unknown]

NARRATIVE: CASE EVENT DATE: 2016
